FAERS Safety Report 17632638 (Version 1)
Quarter: 2020Q2

REPORT INFORMATION
  Report Type: Spontaneous
  Country: GB (occurrence: GB)
  Receive Date: 20200406
  Receipt Date: 20200406
  Transmission Date: 20200713
  Serious: Yes (Hospitalization, Other)
  Sender: FDA-Public Use
  Company Number: GB-SA-2020SA082913

PATIENT
  Age: 61 Year
  Sex: Male

DRUGS (2)
  1. TAMSULOSIN HYDROCHLORIDE. [Suspect]
     Active Substance: TAMSULOSIN HYDROCHLORIDE
     Dosage: 400 UG, HS
     Route: 048
  2. SODIUM VALPROATE [Concomitant]
     Active Substance: VALPROATE SODIUM
     Dosage: AT NIGHT
     Route: 048

REACTIONS (4)
  - Faecaloma [Recovered/Resolved]
  - Abnormal behaviour [Unknown]
  - Abdominal distension [Recovered/Resolved]
  - Constipation [Recovered/Resolved]

NARRATIVE: CASE EVENT DATE: 20200201
